FAERS Safety Report 8178104-X (Version None)
Quarter: 2012Q1

REPORT INFORMATION
  Report Type: 
  Country: None (occurrence: None)
  Receive Date: 20120301
  Receipt Date: 20120221
  Transmission Date: 20120608
  Serious: Yes (Other)
  Sender: FDA-Public Use
  Company Number: US-ELI_LILLY_AND_COMPANY-US201202006312

PATIENT
  Sex: Male

DRUGS (4)
  1. HUMALOG MIX 75/25 [Suspect]
     Indication: TYPE 2 DIABETES MELLITUS
     Dosage: 20 U, EACH MORNING
     Route: 065
  2. HUMALOG MIX 75/25 [Suspect]
     Dosage: 16 U, EACH EVENING
     Route: 065
  3. HUMALOG MIX 75/25 [Suspect]
     Dosage: 20 U, EACH MORNING
     Route: 065
  4. HUMALOG MIX 75/25 [Suspect]
     Dosage: 16 U, EACH EVENING
     Route: 065

REACTIONS (1)
  - DEAFNESS [None]
